FAERS Safety Report 9141071 (Version 1)
Quarter: 2013Q1

REPORT INFORMATION
  Report Type: Report from Study
  Country: US (occurrence: US)
  Receive Date: 20130305
  Receipt Date: 20130305
  Transmission Date: 20140127
  Serious: Yes (Hospitalization)
  Sender: FDA-Public Use
  Company Number: US-PFIZER INC-2013065525

PATIENT
  Age: 67 Year
  Sex: Male

DRUGS (2)
  1. TEMSIROLIMUS [Suspect]
     Indication: THYROID CANCER METASTATIC
     Dosage: 15 MG, WEEKLY
     Route: 042
     Dates: start: 20110708
  2. SORAFENIB [Suspect]
     Indication: THYROID CANCER METASTATIC
     Dosage: 200 MG, 2X/DAY
     Route: 048
     Dates: start: 20110708

REACTIONS (2)
  - Pulmonary haemorrhage [Unknown]
  - Anaemia [Unknown]
